FAERS Safety Report 9714367 (Version 3)
Quarter: 2014Q2

REPORT INFORMATION
  Report Type: Report from Study
  Country: US (occurrence: US)
  Receive Date: 20131126
  Receipt Date: 20140613
  Transmission Date: 20141212
  Serious: Yes (Hospitalization)
  Sender: FDA-Public Use
  Company Number: US-VERTEX PHARMACEUTICALS INC-2013-011168

PATIENT
  Age: 11 Year
  Sex: Female

DRUGS (1)
  1. IVACAFTOR [Suspect]
     Indication: CYSTIC FIBROSIS
     Dosage: 150 MG, BID
     Route: 048
     Dates: start: 20120406

REACTIONS (4)
  - Nasal polyps [Recovered/Resolved]
  - Sinusitis fungal [Unknown]
  - Lower respiratory tract infection fungal [Recovered/Resolved]
  - Photosensitivity reaction [Recovered/Resolved]
